FAERS Safety Report 5582959-2 (Version None)
Quarter: 2007Q4

REPORT INFORMATION
  Report Type: 
  Country: None (occurrence: None)
  Receive Date: 20071231
  Receipt Date: 20071218
  Transmission Date: 20080405
  Serious: Yes (Hospitalization)
  Sender: FDA-Public Use
  Company Number: TCI2007A03180

PATIENT
  Age: 80 Year
  Sex: Female

DRUGS (10)
  1. ACTOS [Suspect]
     Indication: TYPE 2 DIABETES MELLITUS
     Dosage: 30 MG (30 MG,  I-2D) PER ORAL
     Route: 048
     Dates: start: 20070528, end: 20070625
  2. BEPRICOR (BEPRIDIL) [Suspect]
     Indication: ARRHYTHMIA
     Dosage: 100 MG (50 MG, 2 IN 1 D) PER ORAL
     Route: 048
     Dates: end: 20070624
  3. BASEN OD TABLETS 0.3 (VOGLIBOSE) [Concomitant]
  4. ASPIRIN [Concomitant]
  5. WARFARIN (WARFARIN POTASSIUM) [Concomitant]
  6. ONEALFA (ALFACALCIDOL) [Concomitant]
  7. DIOVAN [Concomitant]
  8. GLUFAST (MITIGLINIDE CALCIUM HYDRATE) [Concomitant]
  9. FRANDOL TAPE S (ISOSORBIDE DINITRATE) [Concomitant]
  10. METFORMIN HYDROCHLORIDE [Concomitant]

REACTIONS (4)
  - CARDIAC FAILURE CHRONIC [None]
  - NASOPHARYNGITIS [None]
  - PLEURAL EFFUSION [None]
  - WEIGHT DECREASED [None]
